FAERS Safety Report 9069781 (Version 1)
Quarter: 2013Q1

REPORT INFORMATION
  Report Type: Report from Study
  Country: US (occurrence: US)
  Receive Date: 20130215
  Receipt Date: 20130215
  Transmission Date: 20140127
  Serious: Yes (Life-Threatening, Hospitalization, Other)
  Sender: FDA-Public Use
  Company Number: US-US-EMD SERONO, INC.-7193691

PATIENT
  Age: 44 None
  Sex: Female
  Weight: 82 kg

DRUGS (1)
  1. REBIF [Suspect]
     Indication: MULTIPLE SCLEROSIS
     Route: 058
     Dates: start: 2005, end: 20110428

REACTIONS (5)
  - Acute respiratory distress syndrome [Recovered/Resolved]
  - Kidney infection [Recovered/Resolved]
  - Ureteric obstruction [Unknown]
  - Asthenia [Unknown]
  - Gait disturbance [Unknown]
